FAERS Safety Report 19820521 (Version 1)
Quarter: 2021Q3

REPORT INFORMATION
  Report Type: Spontaneous
  Country: US (occurrence: US)
  Receive Date: 20210908
  Receipt Date: 20210908
  Transmission Date: 20211014
  Serious: Yes (Other)
  Sender: FDA-Public Use
  Company Number: None

PATIENT
  Age: 16 Year
  Sex: Male
  Weight: 58.97 kg

DRUGS (1)
  1. GUANFACINE ER 4MG TABLET [Suspect]
     Active Substance: GUANFACINE
     Indication: ATTENTION DEFICIT HYPERACTIVITY DISORDER
     Dosage: ?          OTHER FREQUENCY:QAM;?
     Route: 048
     Dates: start: 20180101, end: 20180202

REACTIONS (5)
  - Poor quality sleep [None]
  - Impulsive behaviour [None]
  - Product substitution issue [None]
  - Attention deficit hyperactivity disorder [None]
  - Aggression [None]

NARRATIVE: CASE EVENT DATE: 20180220
